FAERS Safety Report 8025675-X (Version None)
Quarter: 2012Q1

REPORT INFORMATION
  Report Type: 
  Country: None (occurrence: None)
  Receive Date: 20120105
  Receipt Date: 20111205
  Transmission Date: 20120608
  Serious: Yes (Death, Hospitalization)
  Sender: FDA-Public Use
  Company Number: IN-BAXTER-2012BH000159

PATIENT
  Age: 74 Year
  Sex: Male
  Weight: 72 kg

DRUGS (1)
  1. ALBUMIN (HUMAN) [Suspect]
     Indication: FLUID REPLACEMENT
     Route: 065
     Dates: end: 20111128

REACTIONS (2)
  - ERYTHEMA [None]
  - SEPSIS [None]
